FAERS Safety Report 10981963 (Version 4)
Quarter: 2015Q3

REPORT INFORMATION
  Report Type: Spontaneous
  Country: US (occurrence: US)
  Receive Date: 20150403
  Receipt Date: 20150723
  Transmission Date: 20151125
  Serious: Yes (Other)
  Sender: FDA-Public Use
  Company Number: US-AMGEN-USASL2015031014

PATIENT
  Age: 74 Year
  Sex: Male
  Weight: 65.31 kg

DRUGS (1)
  1. PROCRIT [Suspect]
     Active Substance: ERYTHROPOIETIN
     Indication: CHRONIC KIDNEY DISEASE
     Dosage: 10000 UNIT, WEEKLY
     Route: 065
     Dates: start: 20071007

REACTIONS (10)
  - Presyncope [Unknown]
  - Platelet count increased [Unknown]
  - Asthenia [Unknown]
  - Decreased appetite [Unknown]
  - Adverse event [Unknown]
  - Rectal haemorrhage [Unknown]
  - Myeloproliferative disorder [Unknown]
  - Pallor [Unknown]
  - White blood cell count increased [Unknown]
  - Anaemia [Unknown]
